FAERS Safety Report 4510651-1 (Version None)
Quarter: 2004Q4

REPORT INFORMATION
  Report Type: 
  Country: None (occurrence: None)
  Receive Date: 20041122
  Receipt Date: 20041108
  Transmission Date: 20050328
  Serious: Yes (Other)
  Sender: FDA-Public Use
  Company Number: HQWYE486616NOV04

PATIENT

DRUGS (1)
  1. AMIODARONE (AMIODARONE) [Suspect]
     Indication: ATRIAL FIBRILLATION
     Dosage: 400 MG 1X PER 1 DAY

REACTIONS (1)
  - NEUROLOGICAL SYMPTOM [None]
